FAERS Safety Report 7137731-9 (Version None)
Quarter: 2010Q4

REPORT INFORMATION
  Report Type: 
  Country: None (occurrence: None)
  Receive Date: 20101206
  Receipt Date: 20101122
  Transmission Date: 20110411
  Serious: Yes (Hospitalization)
  Sender: FDA-Public Use
  Company Number: PHHY2010GR74124

PATIENT
  Sex: Female
  Weight: 17 kg

DRUGS (3)
  1. ICL670A ICL+DISTAB [Suspect]
     Indication: THALASSAEMIA
     Dosage: 625 MG, (37MG/KG/DAY)
     Route: 048
     Dates: start: 20090717, end: 20101030
  2. ICL670A ICL+DISTAB [Suspect]
     Indication: IRON OVERLOAD
  3. DIURENE [Suspect]
     Indication: HYPERCALCIURIA
     Dosage: 0.5 TSP, DAILY
     Route: 048
     Dates: start: 20100608, end: 20101030

REACTIONS (7)
  - ABDOMINAL PAIN [None]
  - ABDOMINAL TENDERNESS [None]
  - ASTHENIA [None]
  - HYPERTRANSAMINASAEMIA [None]
  - HYPOKALAEMIA [None]
  - RENAL IMPAIRMENT [None]
  - VOMITING [None]
